FAERS Safety Report 19591773 (Version 6)
Quarter: 2021Q3

REPORT INFORMATION
  Report Type: Report from Study
  Country: US (occurrence: US)
  Receive Date: 20210721
  Receipt Date: 20210928
  Transmission Date: 20211014
  Serious: Yes (Other)
  Sender: FDA-Public Use
  Company Number: US-JAZZ-2021-US-012879

PATIENT
  Age: 71 Year
  Sex: Male
  Weight: 99.77 kg

DRUGS (2)
  1. XYREM [Suspect]
     Active Substance: SODIUM OXYBATE
     Indication: SOMNOLENCE
     Dosage: 2.25 GRAM FIRST DOSE
     Route: 048
     Dates: start: 20210710
  2. XYREM [Suspect]
     Active Substance: SODIUM OXYBATE
     Dosage: 2.5 GRAM SECOND DOSE
     Route: 048
     Dates: start: 20210710

REACTIONS (10)
  - Dizziness [Recovering/Resolving]
  - Blood pressure decreased [Not Recovered/Not Resolved]
  - Dissociation [Not Recovered/Not Resolved]
  - Oropharyngeal discomfort [Not Recovered/Not Resolved]
  - Feeling drunk [Not Recovered/Not Resolved]
  - Initial insomnia [Unknown]
  - Lethargy [Recovering/Resolving]
  - Inappropriate schedule of product administration [Unknown]
  - Off label use [Unknown]
  - Drug ineffective for unapproved indication [Not Recovered/Not Resolved]

NARRATIVE: CASE EVENT DATE: 2021
